FAERS Safety Report 6819787-3 (Version None)
Quarter: 2010Q3

REPORT INFORMATION
  Report Type: 
  Country: None (occurrence: None)
  Receive Date: 20100707
  Receipt Date: 20100623
  Transmission Date: 20110219
  Serious: Yes (Other)
  Sender: FDA-Public Use
  Company Number: PHEH2008US05595

PATIENT
  Sex: Female

DRUGS (1)
  1. ZOMETA [Suspect]

REACTIONS (11)
  - ANHEDONIA [None]
  - ANXIETY [None]
  - DENTAL CARIES [None]
  - DENTAL PULP DISORDER [None]
  - DISABILITY [None]
  - INJURY [None]
  - OSTEONECROSIS OF JAW [None]
  - PAIN [None]
  - TOOTH EXTRACTION [None]
  - TOOTH REPAIR [None]
  - TOOTHACHE [None]
